FAERS Safety Report 6068635-0 (Version None)
Quarter: 2009Q1

REPORT INFORMATION
  Report Type: 
  Country: None (occurrence: None)
  Receive Date: 20090206
  Receipt Date: 20090129
  Transmission Date: 20090719
  Serious: Yes (Hospitalization)
  Sender: FDA-Public Use
  Company Number: US-ASTRAZENECA-2009UW02802

PATIENT
  Age: 18 Year
  Sex: Male
  Weight: 90.7 kg

DRUGS (2)
  1. SEROQUEL XR [Suspect]
     Indication: OPPOSITIONAL DEFIANT DISORDER
     Route: 048
     Dates: start: 20081219, end: 20090112
  2. SEROQUEL XR [Suspect]
     Route: 048
     Dates: start: 20081219, end: 20090112

REACTIONS (4)
  - DECREASED APPETITE [None]
  - TARDIVE DYSKINESIA [None]
  - VISION BLURRED [None]
  - WEIGHT DECREASED [None]
